FAERS Safety Report 9680880 (Version 1)
Quarter: 2013Q4

REPORT INFORMATION
  Report Type: Spontaneous
  Country: US (occurrence: None)
  Receive Date: 20131108
  Receipt Date: 20131108
  Transmission Date: 20140711
  Serious: No
  Sender: FDA-Public Use
  Company Number: None

PATIENT
  Age: 50 Year
  Sex: Female

DRUGS (1)
  1. TECFIDERA [Suspect]
     Indication: MULTIPLE SCLEROSIS
     Dosage: 1 CAPSULE, BID, ORAL
     Route: 048
     Dates: start: 20131016, end: 20131107

REACTIONS (2)
  - Abdominal pain upper [None]
  - Nausea [None]
